FAERS Safety Report 6343167-0 (Version None)
Quarter: 2009Q3

REPORT INFORMATION
  Report Type: 
  Country: None (occurrence: None)
  Receive Date: 20090908
  Receipt Date: 20090902
  Transmission Date: 20100115
  Serious: Yes (Hospitalization)
  Sender: FDA-Public Use
  Company Number: JP-BAYER-200912983BYL

PATIENT
  Age: 32 Year
  Sex: Female

DRUGS (2)
  1. BAYASPIRIN [Suspect]
     Indication: ANTIPHOSPHOLIPID SYNDROME
     Route: 048
  2. HEPARIN [Suspect]
     Indication: ANTIPHOSPHOLIPID SYNDROME
     Route: 065

REACTIONS (3)
  - GASTROSCHISIS [None]
  - INTRA-UTERINE DEATH [None]
  - UTERINE HAEMATOMA [None]
